FAERS Safety Report 4693348-7 (Version None)
Quarter: 2005Q2

REPORT INFORMATION
  Report Type: 
  Country: None (occurrence: None)
  Receive Date: 20050615
  Receipt Date: 20050531
  Transmission Date: 20051028
  Serious: Yes (Other)
  Sender: FDA-Public Use
  Company Number: US_0412109210

PATIENT
  Sex: Male

DRUGS (1)
  1. ZYPREXA [Suspect]
     Indication: POST-TRAUMATIC STRESS DISORDER
     Dates: start: 19980302

REACTIONS (13)
  - BLOOD TRIGLYCERIDES INCREASED [None]
  - CHOLECYSTECTOMY [None]
  - CONDITION AGGRAVATED [None]
  - DIABETES MELLITUS INSULIN-DEPENDENT [None]
  - DIABETIC NEUROPATHY [None]
  - ERECTILE DYSFUNCTION [None]
  - HEPATIC FAILURE [None]
  - HEPATIC STEATOSIS [None]
  - HERNIA REPAIR [None]
  - HYPERLIPIDAEMIA [None]
  - HYPERTENSION [None]
  - PANCREATITIS CHRONIC [None]
  - POST-TRAUMATIC STRESS DISORDER [None]
